FAERS Safety Report 8967408 (Version 5)
Quarter: 2013Q4

REPORT INFORMATION
  Report Type: Spontaneous
  Country: US (occurrence: US)
  Receive Date: 20121217
  Receipt Date: 20131211
  Transmission Date: 20140711
  Serious: Yes (Death, Hospitalization)
  Sender: FDA-Public Use
  Company Number: US-BIOGENIDEC-2012BI058911

PATIENT
  Age: 69 Year
  Sex: Female

DRUGS (2)
  1. AVONEX [Suspect]
     Indication: MULTIPLE SCLEROSIS
     Route: 030
     Dates: start: 19980125
  2. AVONEX [Suspect]
     Indication: MULTIPLE SCLEROSIS
     Route: 030

REACTIONS (14)
  - Renal failure acute [Fatal]
  - Pneumonia [Fatal]
  - General physical health deterioration [Fatal]
  - Sciatica [Unknown]
  - Fall [Unknown]
  - Delusion [Unknown]
  - Dehydration [Unknown]
  - Blood creatinine increased [Unknown]
  - Dysarthria [Unknown]
  - Dyspnoea [Unknown]
  - Pain [Unknown]
  - Muscular weakness [Unknown]
  - Stress [Unknown]
  - Asthenia [Unknown]
